FAERS Safety Report 4817866-3 (Version None)
Quarter: 2005Q4

REPORT INFORMATION
  Report Type: 
  Country: None (occurrence: None)
  Receive Date: 20051031
  Receipt Date: 20051031
  Transmission Date: 20060501
  Serious: Yes (Other)
  Sender: FDA-Public Use
  Company Number: None

PATIENT
  Age: 57 Year
  Sex: Male
  Weight: 50.8029 kg

DRUGS (1)
  1. HEPARIN [Suspect]

REACTIONS (3)
  - ANTIBODY TEST POSITIVE [None]
  - HAEMODIALYSIS [None]
  - THROMBOCYTOPENIA [None]
